FAERS Safety Report 14084485 (Version 1)
Quarter: 2017Q4

REPORT INFORMATION
  Report Type: Spontaneous
  Country: US (occurrence: None)
  Receive Date: 20171013
  Receipt Date: 20171013
  Transmission Date: 20180321
  Serious: Yes (Other)
  Sender: FDA-Public Use
  Company Number: None

PATIENT
  Age: 56 Year
  Sex: Female

DRUGS (7)
  1. REGRANEX [Suspect]
     Active Substance: BECAPLERMIN
     Indication: PAIN IN EXTREMITY
     Dosage: 0.01% QD, 12 HR ON 12 HR OFF TOPICALLY ON BOTTOM OF FOOT
     Route: 061
     Dates: start: 20170109, end: 20170309
  2. SIMVASTATIN. [Concomitant]
     Active Substance: SIMVASTATIN
  3. REGRANEX [Suspect]
     Active Substance: BECAPLERMIN
     Indication: WOUND
     Dosage: 0.01% QD, 12 HR ON 12 HR OFF TOPICALLY ON BOTTOM OF FOOT
     Route: 061
     Dates: start: 20170109, end: 20170309
  4. CLOPIDOGREL [Concomitant]
     Active Substance: CLOPIDOGREL BISULFATE
  5. METOPROLOL TARTRATE. [Concomitant]
     Active Substance: METOPROLOL TARTRATE
  6. GLIPIZIDE. [Concomitant]
     Active Substance: GLIPIZIDE
  7. LEVOTHYROXINE. [Concomitant]
     Active Substance: LEVOTHYROXINE

REACTIONS (2)
  - Joint swelling [None]
  - Erythema [None]

NARRATIVE: CASE EVENT DATE: 20170101
